FAERS Safety Report 5861515-2 (Version None)
Quarter: 2008Q3

REPORT INFORMATION
  Report Type: 
  Country: None (occurrence: None)
  Receive Date: 20080827
  Receipt Date: 20080604
  Transmission Date: 20090109
  Serious: Yes (Life-Threatening, Hospitalization, Other)
  Sender: FDA-Public Use
  Company Number: US-ABBOTT-08P-163-0453664-00

PATIENT
  Sex: Male
  Weight: 96.248 kg

DRUGS (1)
  1. COATED PDS [Suspect]
     Indication: BLOOD CHOLESTEROL INCREASED
     Route: 048
     Dates: start: 20080503, end: 20080503

REACTIONS (2)
  - ANAPHYLACTIC SHOCK [None]
  - OEDEMA PERIPHERAL [None]
